FAERS Safety Report 19206194 (Version 3)
Quarter: 2021Q3

REPORT INFORMATION
  Report Type: Report from Study
  Country: US (occurrence: US)
  Receive Date: 20210503
  Receipt Date: 20210722
  Transmission Date: 20211014
  Serious: Yes (Other)
  Sender: FDA-Public Use
  Company Number: US-BIOGEN-2021BI01006595

PATIENT
  Age: 53 Year
  Sex: Female

DRUGS (2)
  1. TYSABRI [Suspect]
     Active Substance: NATALIZUMAB
     Indication: MULTIPLE SCLEROSIS
     Dosage: INFUSE OVER 1 HR
     Route: 042
     Dates: start: 20170525
  2. TYSABRI [Suspect]
     Active Substance: NATALIZUMAB
     Route: 065

REACTIONS (4)
  - Basal cell carcinoma [Unknown]
  - Prescribed underdose [Unknown]
  - Skin cancer [Unknown]
  - Skin lesion [Unknown]

NARRATIVE: CASE EVENT DATE: 20190918
